FAERS Safety Report 4676297-X (Version None)
Quarter: 2005Q2

REPORT INFORMATION
  Report Type: 
  Country: None (occurrence: None)
  Receive Date: 20050527
  Receipt Date: 20050216
  Transmission Date: 20051028
  Serious: No
  Sender: FDA-Public Use
  Company Number: US-GLAXOSMITHKLINE-A0545932A

PATIENT
  Age: 38 Year
  Sex: Female

DRUGS (3)
  1. WELLBUTRIN XL [Suspect]
     Dosage: 150MG ALTERNATE DAYS
     Route: 048
     Dates: start: 20041213, end: 20050210
  2. SYNTHROID [Concomitant]
  3. XANAX [Concomitant]

REACTIONS (1)
  - CONSTIPATION [None]
